FAERS Safety Report 21315926 (Version 2)
Quarter: 2022Q3

REPORT INFORMATION
  Report Type: Spontaneous
  Country: US (occurrence: US)
  Receive Date: 20220910
  Receipt Date: 20220917
  Transmission Date: 20221026
  Serious: Yes (Life-Threatening, Other)
  Sender: FDA-Public Use
  Company Number: US-drreddys-LIT/USA/22/0154200

PATIENT
  Age: 28 Year
  Sex: Male

DRUGS (10)
  1. DOXORUBICIN HYDROCHLORIDE [Suspect]
     Active Substance: DOXORUBICIN HYDROCHLORIDE
     Indication: Lymphoma
     Dates: start: 201808
  2. DOXORUBICIN HYDROCHLORIDE [Suspect]
     Active Substance: DOXORUBICIN HYDROCHLORIDE
     Indication: Hydroa vacciniforme
  3. CYCLOPHOSPHAMIDE [Suspect]
     Active Substance: CYCLOPHOSPHAMIDE
     Indication: Hydroa vacciniforme
     Dates: start: 201808
  4. CYCLOPHOSPHAMIDE [Suspect]
     Active Substance: CYCLOPHOSPHAMIDE
     Indication: Lymphoma
  5. ETOPOSIDE [Suspect]
     Active Substance: ETOPOSIDE
     Indication: Hydroa vacciniforme
     Dates: start: 201808
  6. ETOPOSIDE [Suspect]
     Active Substance: ETOPOSIDE
     Indication: Lymphoma
  7. VINCRISTINE [Suspect]
     Active Substance: VINCRISTINE
     Indication: Hydroa vacciniforme
     Dates: start: 201808
  8. VINCRISTINE [Suspect]
     Active Substance: VINCRISTINE
     Indication: Lymphoma
  9. PREDNISONE [Suspect]
     Active Substance: PREDNISONE
     Indication: Hydroa vacciniforme
     Dates: start: 201808
  10. PREDNISONE [Suspect]
     Active Substance: PREDNISONE
     Indication: Lymphoma

REACTIONS (4)
  - Drug ineffective [Unknown]
  - Disease progression [Unknown]
  - Hepatosplenomegaly [Unknown]
  - Lymphoproliferative disorder [Unknown]
